FAERS Safety Report 6528098-5 (Version None)
Quarter: 2010Q1

REPORT INFORMATION
  Report Type: 
  Country: None (occurrence: None)
  Receive Date: 20100105
  Receipt Date: 20100105
  Transmission Date: 20100710
  Serious: Yes (Hospitalization)
  Sender: FDA-Public Use
  Company Number: None

PATIENT
  Sex: Male

DRUGS (10)
  1. DIVALPROEX EXTENDED-RELEASE [Suspect]
     Indication: AFFECTIVE DISORDER
     Dosage: 750MG BEDTIME PO
     Route: 048
     Dates: start: 20091105, end: 20091110
  2. ABILIFY [Concomitant]
  3. HALOPERIDOL [Concomitant]
  4. BENZTROPINE MESYLATE [Concomitant]
  5. ZOLPIDEM TARTRATE [Concomitant]
  6. LORAZEPAM [Concomitant]
  7. APAP TAB [Concomitant]
  8. MILK OF MAGNESIA TAB [Concomitant]
  9. MAALOX LIQ [Concomitant]
  10. NICORETTE [Concomitant]

REACTIONS (2)
  - CONFUSIONAL STATE [None]
  - SEDATION [None]
